FAERS Safety Report 7917161-X (Version None)
Quarter: 2011Q4

REPORT INFORMATION
  Report Type: 
  Country: None (occurrence: None)
  Receive Date: 20111116
  Receipt Date: 20111110
  Transmission Date: 20120403
  Serious: Yes (Hospitalization)
  Sender: FDA-Public Use
  Company Number: AT-SANOFI-AVENTIS-2011SA074060

PATIENT
  Age: 56 Year
  Sex: Female
  Weight: 49.7 kg

DRUGS (10)
  1. HUMIRA [Suspect]
     Dosage: FREQUENCY: EVERY TWO WEEKS
     Route: 048
     Dates: start: 20070101
  2. CONCOR [Concomitant]
  3. ARAVA [Suspect]
     Route: 048
     Dates: start: 20070101
  4. PANTOPRAZOLE [Concomitant]
  5. PREDNISOLONE [Concomitant]
  6. LISINOPRIL [Concomitant]
  7. EZETIMIBE [Concomitant]
     Dates: start: 20080101
  8. PLAVIX [Concomitant]
  9. DICLOFENAC SODIUM [Concomitant]
  10. IBANDRONATE SODIUM [Concomitant]
     Dates: start: 20080101

REACTIONS (1)
  - THYROIDITIS [None]
